FAERS Safety Report 5483821-6 (Version None)
Quarter: 2007Q4

REPORT INFORMATION
  Report Type: 
  Country: None (occurrence: None)
  Receive Date: 20071012
  Receipt Date: 20071011
  Transmission Date: 20080405
  Serious: Yes (Other)
  Sender: FDA-Public Use
  Company Number: D0054799A

PATIENT
  Age: 33 Year
  Sex: Female

DRUGS (3)
  1. CEFUHEXAL [Suspect]
     Indication: TONSILLITIS
     Dosage: 500MG PER DAY
     Route: 048
     Dates: start: 20070826, end: 20070904
  2. LEVOTHYROXINE SODIUM [Concomitant]
     Dosage: 112UG PER DAY
     Route: 048
  3. CEFASEL [Concomitant]
     Dosage: 300UG ALTERNATE DAYS
     Route: 048

REACTIONS (1)
  - MULTIPLE SCLEROSIS [None]
